FAERS Safety Report 6041221-4 (Version None)
Quarter: 2009Q1

REPORT INFORMATION
  Report Type: 
  Country: None (occurrence: None)
  Receive Date: 20090116
  Receipt Date: 20080918
  Transmission Date: 20090719
  Serious: No
  Sender: FDA-Public Use
  Company Number: US-BRISTOL-MYERS SQUIBB COMPANY-14339691

PATIENT
  Age: 50 Year
  Sex: Male
  Weight: 124 kg

DRUGS (18)
  1. ABILIFY [Suspect]
     Indication: BIPOLAR I DISORDER
     Dosage: STARTED ABILIFY 10MG QD 4 YEARS AGO ,INCREASED TO 10MG,2 TABLETS DAILY 2 YEARS AGO.
  2. LAMICTAL [Concomitant]
  3. PRISTIQ [Concomitant]
  4. AMLODIPINE [Concomitant]
  5. ADVICOR [Concomitant]
  6. TIZANIDINE HCL [Concomitant]
  7. VERAMYST [Concomitant]
     Dosage: FORMULATION : INHALER
  8. KLONOPIN [Concomitant]
  9. HYDROCHLOROTHIAZIDE [Concomitant]
  10. VYVANSE [Concomitant]
  11. QUINAPRIL [Concomitant]
  12. ROZEREM [Concomitant]
  13. OXYCONTIN [Concomitant]
  14. ADDERALL XR 20 [Concomitant]
  15. METOPROLOL TARTRATE [Concomitant]
  16. VITAMIN E [Concomitant]
  17. ASCORBIC ACID [Concomitant]
  18. MULTI-VITAMIN [Concomitant]

REACTIONS (1)
  - WEIGHT LOSS POOR [None]
